FAERS Safety Report 25179402 (Version 5)
Quarter: 2025Q4

REPORT INFORMATION
  Report Type: Spontaneous
  Country: CA (occurrence: CA)
  Receive Date: 20250409
  Receipt Date: 20251021
  Transmission Date: 20260118
  Serious: Yes (Other)
  Sender: PFIZER
  Company Number: CA-PFIZER INC-202300414824

PATIENT
  Age: 47 Year
  Sex: Female

DRUGS (8)
  1. RUXIENCE [Suspect]
     Active Substance: RITUXIMAB-PVVR
     Indication: Multiple sclerosis
     Dosage: 1000 MG Q 2 WEEKS X 2 DOSES THEN 1000 MG Q 6 MONTHS
     Route: 042
     Dates: start: 20240227
  2. RUXIENCE [Suspect]
     Active Substance: RITUXIMAB-PVVR
     Indication: Systemic lupus erythematosus
     Dosage: 1000 MG Q 2 WEEKS X 2 DOSES THEN 1000 MG Q 6 MONTHS
     Route: 042
     Dates: start: 20240313
  3. RUXIENCE [Suspect]
     Active Substance: RITUXIMAB-PVVR
     Dosage: 1000 MG, EVERY 6 MONTHS
     Route: 042
     Dates: start: 20240911, end: 20240911
  4. RUXIENCE [Suspect]
     Active Substance: RITUXIMAB-PVVR
     Dosage: 1000 MG (1000 MG, EVERY 6 MONTHS)
     Route: 042
     Dates: start: 20250415
  5. DEXEDRINE [Concomitant]
     Active Substance: DEXTROAMPHETAMINE SULFATE
     Indication: Fatigue
     Dosage: 5 MG, DAILY (AS NEEDED)
     Route: 048
  6. HYDROXYCHLOROQUINE [Concomitant]
     Active Substance: HYDROXYCHLOROQUINE
     Indication: Systemic lupus erythematosus
     Dosage: 200 MG, 1X/DAY
  7. MAGNESIUM L-THREONATE [Concomitant]
     Dosage: UNK
  8. CHOLECALCIFEROL [Concomitant]
     Active Substance: CHOLECALCIFEROL
     Dosage: 5000 IU, 1X/DAY

REACTIONS (10)
  - Multiple sclerosis [Unknown]
  - Condition aggravated [Unknown]
  - Upper motor neurone lesion [Unknown]
  - Saccadic eye movement disorder [Unknown]
  - Sensory loss [Unknown]
  - Urinary tract infection [Recovered/Resolved]
  - Panic attack [Unknown]
  - Anticipatory anxiety [Unknown]
  - Emotional distress [Unknown]
  - Off label use [Unknown]

NARRATIVE: CASE EVENT DATE: 20240227
